FAERS Safety Report 17911048 (Version 3)
Quarter: 2020Q3

REPORT INFORMATION
  Report Type: Spontaneous
  Country: CA (occurrence: CA)
  Receive Date: 20200618
  Receipt Date: 20200814
  Transmission Date: 20201103
  Serious: Yes (Other)
  Sender: FDA-Public Use
  Company Number: CA-ROCHE-2622594

PATIENT
  Sex: Female

DRUGS (1)
  1. RITUXIMAB. [Suspect]
     Active Substance: RITUXIMAB
     Indication: PRODUCT USED FOR UNKNOWN INDICATION
     Route: 065
     Dates: start: 2018, end: 20190328

REACTIONS (4)
  - Constipation [Unknown]
  - Haemorrhoids [Recovered/Resolved]
  - Skin laceration [Unknown]
  - Dysphagia [Unknown]

NARRATIVE: CASE EVENT DATE: 201909
